FAERS Safety Report 25183158 (Version 1)
Quarter: 2025Q2

REPORT INFORMATION
  Report Type: Report from Study
  Country: IN (occurrence: IN)
  Receive Date: 20250410
  Receipt Date: 20250410
  Transmission Date: 20250716
  Serious: Yes (Other)
  Sender: CIPLA
  Company Number: IN-CIPLA LTD.-2025IN03205

PATIENT

DRUGS (14)
  1. METOPROLOL SUCCINATE [Suspect]
     Active Substance: METOPROLOL SUCCINATE
     Indication: Cardiac disorder
     Route: 048
  2. LEVOTHYROXINE [Concomitant]
     Active Substance: LEVOTHYROXINE
     Indication: Hypothyroidism
     Route: 065
  3. IVABID [Concomitant]
     Indication: Cardiac disorder
     Route: 065
  4. GLYCINORM [Concomitant]
     Indication: Diabetes mellitus
     Route: 065
  5. SITAZIT D [Concomitant]
     Indication: Diabetes mellitus
     Route: 065
  6. RIVALTO [Concomitant]
     Indication: Cardiac disorder
     Route: 065
  7. NEFROSAVE [Concomitant]
     Indication: Renal disorder
     Route: 065
  8. LASIX [Concomitant]
     Active Substance: FUROSEMIDE
     Indication: Fluid retention
     Route: 065
  9. FURIC [Concomitant]
     Indication: Blood uric acid abnormal
     Route: 065
  10. SAROTENA [Concomitant]
     Indication: Depression
     Route: 065
  11. SAROTENA [Concomitant]
     Indication: Neuralgia
  12. ZOLPIDEM TARTRATE [Concomitant]
     Active Substance: ZOLPIDEM TARTRATE
     Indication: Sleep disorder
     Route: 065
  13. PAN [Concomitant]
     Indication: Gastrointestinal disorder
     Route: 065
  14. ISORDIL [Concomitant]
     Active Substance: ISOSORBIDE DINITRATE
     Indication: Cardiac disorder
     Route: 065

REACTIONS (3)
  - Angina pectoris [Unknown]
  - Decreased appetite [Not Recovered/Not Resolved]
  - Dysuria [Not Recovered/Not Resolved]

NARRATIVE: CASE EVENT DATE: 20250309
